FAERS Safety Report 5020904-9 (Version None)
Quarter: 2006Q2

REPORT INFORMATION
  Report Type: 
  Country: None (occurrence: None)
  Receive Date: 20060608
  Receipt Date: 20060530
  Transmission Date: 20061013
  Serious: Yes (Other)
  Sender: FDA-Public Use
  Company Number: US-BRISTOL-MYERS SQUIBB COMPANY-13393806

PATIENT
  Age: 54 Year
  Sex: Female

DRUGS (3)
  1. PRAVACHOL [Suspect]
  2. FAMOTIDINE TABS 20 MG [Concomitant]
  3. TRIAMTERENE AND HYDROCHLOROTHIAZIDE [Concomitant]

REACTIONS (4)
  - CARDIAC ARREST [None]
  - EPISTAXIS [None]
  - HYPERTENSION [None]
  - MYOCARDIAL INFARCTION [None]
